FAERS Safety Report 21016816 (Version 1)
Quarter: 2022Q2

REPORT INFORMATION
  Report Type: Report from Study
  Country: IT (occurrence: IT)
  Receive Date: 20220628
  Receipt Date: 20220628
  Transmission Date: 20220721
  Serious: Yes (Hospitalization)
  Sender: FDA-Public Use
  Company Number: IT-MYLANLABS-2022M1048646

PATIENT

DRUGS (2)
  1. QUETIAPINE [Interacting]
     Active Substance: QUETIAPINE
     Indication: Bipolar I disorder
     Dosage: 25 MILLIGRAM
     Route: 065
  2. HALOPERIDOL [Interacting]
     Active Substance: HALOPERIDOL
     Indication: Bipolar I disorder
     Dosage: 2 MILLIGRAM, DEFINED DAILY DOSE: 8MG
     Route: 065

REACTIONS (2)
  - Drug interaction [Unknown]
  - Tremor [Unknown]
